FAERS Safety Report 23512340 (Version 1)
Quarter: 2024Q1

REPORT INFORMATION
  Report Type: Spontaneous
  Country: BE (occurrence: BE)
  Receive Date: 20240212
  Receipt Date: 20240212
  Transmission Date: 20240409
  Serious: Yes (Other)
  Sender: FDA-Public Use
  Company Number: BE-CELLTRION INC.-2024BE002762

PATIENT

DRUGS (6)
  1. ADALIMUMAB [Suspect]
     Active Substance: ADALIMUMAB\ISOPROPYL ALCOHOL
     Indication: Crohn^s disease
     Dosage: UNK
     Route: 058
     Dates: start: 201010
  2. RISANKIZUMAB [Suspect]
     Active Substance: RISANKIZUMAB
     Indication: Crohn^s disease
     Dosage: 600 MG, Q4WEEKS
     Route: 042
     Dates: start: 201503, end: 201503
  3. RISANKIZUMAB [Suspect]
     Active Substance: RISANKIZUMAB
     Dosage: EVERY 8 WEEKS
     Route: 042
     Dates: start: 201506
  4. VITAMIN B12 [Concomitant]
     Active Substance: CYANOCOBALAMIN
     Indication: Product used for unknown indication
  5. LOPERAMIDE HYDROCHLORIDE [Concomitant]
     Active Substance: LOPERAMIDE HYDROCHLORIDE
     Indication: Product used for unknown indication
  6. CHOLESTYRAMINE [Concomitant]
     Active Substance: CHOLESTYRAMINE
     Indication: Product used for unknown indication

REACTIONS (20)
  - Large intestine erosion [Unknown]
  - Colitis erosive [Unknown]
  - Anastomotic ulcer [Unknown]
  - Diarrhoea [Unknown]
  - Diarrhoea [Unknown]
  - Mucous stools [Unknown]
  - Mucous stools [Unknown]
  - Abdominal tenderness [Unknown]
  - Abdominal tenderness [Unknown]
  - Frequent bowel movements [Unknown]
  - Frequent bowel movements [Unknown]
  - Stress [Unknown]
  - Fear of eating [Unknown]
  - Gastrointestinal disorder [Unknown]
  - Defaecation urgency [Unknown]
  - Intestinal anastomosis [Unknown]
  - Anal incontinence [Unknown]
  - Weight decreased [Unknown]
  - Abdominal pain [Unknown]
  - Erythema [Unknown]

NARRATIVE: CASE EVENT DATE: 20150301
